FAERS Safety Report 7888734-8 (Version None)
Quarter: 2011Q4

REPORT INFORMATION
  Report Type: 
  Country: None (occurrence: None)
  Receive Date: 20111103
  Receipt Date: 20111101
  Transmission Date: 20120403
  Serious: Yes (Other)
  Sender: FDA-Public Use
  Company Number: US-PFIZER INC-2011164644

PATIENT
  Sex: Female
  Weight: 77.098 kg

DRUGS (5)
  1. EFFEXOR XR [Suspect]
     Indication: EMOTIONAL DISORDER
     Dosage: 75 MG, DAILY
     Route: 048
     Dates: start: 20010101
  2. LISINOPRIL [Concomitant]
     Indication: HYPERTENSION
     Dosage: 20 MG, DAILY
  3. EFFEXOR XR [Suspect]
     Dosage: 150 MG, DAILY
     Route: 048
     Dates: start: 20110601
  4. EFFEXOR XR [Suspect]
     Dosage: 225 MG, DAILY
     Route: 048
  5. LEVOTHYROXINE [Concomitant]
     Indication: THYROID DISORDER
     Dosage: 50 MG, DAILY

REACTIONS (5)
  - DIZZINESS [None]
  - ANXIETY [None]
  - EAR DISORDER [None]
  - WITHDRAWAL SYNDROME [None]
  - HEADACHE [None]
